FAERS Safety Report 9115187 (Version 1)
Quarter: 2013Q1

REPORT INFORMATION
  Report Type: Spontaneous
  Country: GB (occurrence: None)
  Receive Date: 20130129
  Receipt Date: 20130129
  Transmission Date: 20140127
  Serious: Yes (Life-Threatening, Hospitalization)
  Sender: FDA-Public Use
  Company Number: 1577442

PATIENT
  Age: 91 Year
  Sex: Female

DRUGS (18)
  1. GENTAMICIN SULFATE [Suspect]
     Indication: CELLULITIS
     Route: 042
     Dates: start: 20130108, end: 20130108
  2. TRIMETHOPRIM [Suspect]
     Route: 048
  3. (CALCICHEW D3) [Concomitant]
  4. (STRONTIUM RANELATE) [Concomitant]
  5. CODEINE SULFATE [Concomitant]
  6. PARACETAMOL [Concomitant]
  7. (PONDAPARINUX) [Concomitant]
  8. (CO-AMOXICLAV) [Concomitant]
  9. TICAGRELOR) [Concomitant]
  10. FUROSEMIDE [Concomitant]
  11. SALBUTAMOL [Concomitant]
  12. IPRATROPIUM BROMIDE [Concomitant]
  13. (SANDO K) [Concomitant]
  14. (NITRAZEPAM) [Concomitant]
  15. FOLIC ACID [Concomitant]
  16. (PREGABALIN) [Concomitant]
  17. ASPIRIN [Concomitant]
  18. HYDROCORTISONE [Concomitant]

REACTIONS (1)
  - Anaphylactic reaction [None]
